FAERS Safety Report 9348379 (Version 1)
Quarter: 2013Q2

REPORT INFORMATION
  Report Type: Spontaneous
  Country: US (occurrence: US)
  Receive Date: 20130614
  Receipt Date: 20130614
  Transmission Date: 20140414
  Serious: No
  Sender: FDA-Public Use
  Company Number: US-009507513-1305USA013182

PATIENT
  Age: 65 Year
  Sex: Female

DRUGS (2)
  1. SIMVASTATIN TABLETS, USP [Suspect]
     Dosage: 40 MG, UNK
     Route: 048
  2. ZOCOR [Suspect]
     Route: 048

REACTIONS (2)
  - Diarrhoea [Recovered/Resolved]
  - Drug intolerance [Unknown]
